FAERS Safety Report 23813175 (Version 1)
Quarter: 2024Q2

REPORT INFORMATION
  Report Type: Spontaneous
  Country: US (occurrence: US)
  Receive Date: 20240503
  Receipt Date: 20240503
  Transmission Date: 20240716
  Serious: No
  Sender: FDA-Public Use
  Company Number: US-AMNEAL PHARMACEUTICALS-2024-AMRX-00560

PATIENT
  Sex: Male
  Weight: 18.095 kg

DRUGS (1)
  1. VIGABATRIN [Suspect]
     Active Substance: VIGABATRIN
     Indication: Epilepsy
     Dosage: 900 MG IN AM 1000 MG IN EVENING, DAILY
     Route: 048

REACTIONS (1)
  - Respiratory syncytial virus infection [Unknown]
